FAERS Safety Report 17864645 (Version 1)
Quarter: 2020Q2

REPORT INFORMATION
  Report Type: Spontaneous
  Country: US (occurrence: US)
  Receive Date: 20200605
  Receipt Date: 20200605
  Transmission Date: 20200714
  Serious: No
  Sender: FDA-Public Use
  Company Number: None

PATIENT
  Sex: Female

DRUGS (2)
  1. LOSARTAN. [Suspect]
     Active Substance: LOSARTAN
  2. MAYZENT [Concomitant]
     Active Substance: SIPONIMOD

REACTIONS (8)
  - Muscular weakness [None]
  - Gait disturbance [None]
  - Visual field defect [None]
  - Headache [None]
  - Mass [None]
  - Drug interaction [None]
  - Fear [None]
  - Visual impairment [None]
